FAERS Safety Report 4935807-5 (Version None)
Quarter: 2006Q1

REPORT INFORMATION
  Report Type: 
  Country: None (occurrence: None)
  Receive Date: 20060307
  Receipt Date: 20060103
  Transmission Date: 20060701
  Serious: No
  Sender: FDA-Public Use
  Company Number: US-GLAXOSMITHKLINE-A0587530A

PATIENT
  Sex: Female

DRUGS (2)
  1. REQUIP [Suspect]
     Dosage: 1MG AT NIGHT
     Route: 048
     Dates: start: 20051202
  2. TYLENOL W/ CODEINE NO. 3 [Concomitant]

REACTIONS (1)
  - VISION BLURRED [None]
